FAERS Safety Report 4635198-3 (Version None)
Quarter: 2005Q2

REPORT INFORMATION
  Report Type: 
  Country: None (occurrence: None)
  Receive Date: 20050414
  Receipt Date: 20011008
  Transmission Date: 20051028
  Serious: Yes (Death, Hospitalization)
  Sender: FDA-Public Use
  Company Number: FR-BOEHRINGER INGELHEIM PHARMACEUTICALS, INC.-2001-FF-S0662

PATIENT
  Age: 66 Year
  Sex: Female

DRUGS (13)
  1. PERSANTINE [Suspect]
     Route: 048
     Dates: start: 20010315, end: 20010727
  2. DIPIPERON [Concomitant]
     Route: 048
     Dates: start: 20001015, end: 20010727
  3. MARSILID ROCHE [Concomitant]
     Route: 048
     Dates: start: 20001107, end: 20010725
  4. MODOPAR [Concomitant]
     Route: 048
     Dates: start: 20000515, end: 20010727
  5. NOCTRAN [Concomitant]
     Route: 048
     Dates: start: 20010215, end: 20010727
  6. EFFEXOR [Concomitant]
     Route: 048
     Dates: start: 20010726, end: 20010726
  7. HEPT-A-MYL [Concomitant]
  8. TRANXENE [Concomitant]
  9. DAFLON [Concomitant]
  10. EPHYNAL [Concomitant]
  11. DUPHALAC [Concomitant]
  12. XANAX [Concomitant]
     Dates: start: 20010726, end: 20010726
  13. GARDENAL [Concomitant]
     Indication: CONVULSION
     Dates: start: 20010726

REACTIONS (6)
  - COMA [None]
  - DEATH [None]
  - DISSEMINATED INTRAVASCULAR COAGULATION [None]
  - HEPATITIS [None]
  - PANCREATITIS [None]
  - SHOCK [None]
